FAERS Safety Report 5106216-3 (Version None)
Quarter: 2006Q3

REPORT INFORMATION
  Report Type: 
  Country: None (occurrence: None)
  Receive Date: 20060918
  Receipt Date: 20060905
  Transmission Date: 20061208
  Serious: Yes (Life-Threatening)
  Sender: FDA-Public Use
  Company Number: PHBS2006JP13660

PATIENT
  Age: 60 Year
  Sex: Female

DRUGS (1)
  1. DIOVAN [Suspect]
     Indication: HYPERTENSION
     Dosage: 40 MG/DAY
     Route: 048
     Dates: start: 20060904, end: 20060905

REACTIONS (6)
  - FEELING HOT [None]
  - HEART RATE DECREASED [None]
  - HYPERHIDROSIS [None]
  - INCONTINENCE [None]
  - LOSS OF CONSCIOUSNESS [None]
  - SHOCK [None]
